FAERS Safety Report 22175788 (Version 1)
Quarter: 2023Q2

REPORT INFORMATION
  Report Type: Spontaneous
  Country: US (occurrence: None)
  Receive Date: 20230404
  Receipt Date: 20230404
  Transmission Date: 20230722
  Serious: Yes (Hospitalization, Disabling)
  Sender: FDA-Public Use
  Company Number: None

PATIENT
  Age: 50 Year
  Sex: Female
  Weight: 72.9 kg

DRUGS (9)
  1. DEXAMETHASONE SODIUM PHOSPHATE [Suspect]
     Active Substance: DEXAMETHASONE SODIUM PHOSPHATE
     Dates: start: 20230120, end: 20230120
  2. AMITRIPTYLINE [Concomitant]
     Active Substance: AMITRIPTYLINE
  3. MELOXICAM [Concomitant]
     Active Substance: MELOXICAM
  4. METHOCARBAMOL [Concomitant]
     Active Substance: METHOCARBAMOL
  5. MONTELUKAST [Concomitant]
     Active Substance: MONTELUKAST SODIUM
  6. MAGNESIUM [Concomitant]
     Active Substance: MAGNESIUM
  7. DIETARY SUPPLEMENT [Concomitant]
     Active Substance: DIETARY SUPPLEMENT
  8. Super Vitamin B complex [Concomitant]
  9. VITAMIN D [Concomitant]
     Active Substance: VITAMIN D NOS

REACTIONS (7)
  - Muscular weakness [None]
  - Gait disturbance [None]
  - Road traffic accident [None]
  - Gait disturbance [None]
  - Movement disorder [None]
  - Dysarthria [None]
  - Dyskinesia [None]

NARRATIVE: CASE EVENT DATE: 20230120
